FAERS Safety Report 5838344-9 (Version None)
Quarter: 2008Q3

REPORT INFORMATION
  Report Type: 
  Country: None (occurrence: None)
  Receive Date: 20080808
  Receipt Date: 20080728
  Transmission Date: 20090109
  Serious: Yes (Hospitalization)
  Sender: FDA-Public Use
  Company Number: IN-ROCHE-579860

PATIENT

DRUGS (2)
  1. MYCOPHENOLATE MOFETIL [Suspect]
     Route: 065
  2. PREDNISOLONE [Suspect]
     Route: 065

REACTIONS (2)
  - PNEUMONIA [None]
  - RESPIRATORY FAILURE [None]
